FAERS Safety Report 8614398-1 (Version None)
Quarter: 2012Q3

REPORT INFORMATION
  Report Type: 
  Country: None (occurrence: None)
  Receive Date: 20120823
  Receipt Date: 20120810
  Transmission Date: 20120928
  Serious: No
  Sender: FDA-Public Use
  Company Number: US-BAYER-2012-062894

PATIENT
  Age: 61 Year
  Sex: Female

DRUGS (1)
  1. CLIMARA PRO [Suspect]
     Dosage: UNK
     Route: 062
     Dates: start: 20120601

REACTIONS (3)
  - APPLICATION SITE PRURITUS [None]
  - DERMATITIS CONTACT [None]
  - APPLICATION SITE ERYTHEMA [None]
